FAERS Safety Report 23322368 (Version 1)
Quarter: 2023Q4

REPORT INFORMATION
  Report Type: Spontaneous
  Country: US (occurrence: None)
  Receive Date: 20231220
  Receipt Date: 20231220
  Transmission Date: 20240110
  Serious: Yes (Hospitalization)
  Sender: FDA-Public Use
  Company Number: None

PATIENT
  Age: 21 Year
  Sex: Female

DRUGS (1)
  1. TOBRAMYCIN [Suspect]
     Active Substance: TOBRAMYCIN
     Indication: Cystic fibrosis
     Dosage: OTHER QUANTITY : 300 MG/4ML;?FREQUENCY : TWICE A DAY;?
     Route: 055
     Dates: start: 20231220

REACTIONS (1)
  - Asthma [None]

NARRATIVE: CASE EVENT DATE: 20231110
